FAERS Safety Report 6727590-8 (Version None)
Quarter: 2010Q2

REPORT INFORMATION
  Report Type: 
  Country: None (occurrence: None)
  Receive Date: 20100517
  Receipt Date: 20100517
  Transmission Date: 20101027
  Serious: No
  Sender: FDA-Public Use
  Company Number: None

PATIENT
  Age: 5 Year
  Sex: Male

DRUGS (3)
  1. ZYRTEC [Suspect]
     Indication: HYPERSENSITIVITY
     Dosage: 1 TSP. 1 X DAY PO ; 1/2 TSP. 1 X DAY PO
     Route: 048
     Dates: start: 20070401, end: 20100501
  2. ZYRTEC [Suspect]
     Indication: HYPERSENSITIVITY
     Dosage: 1 TSP. 1 X DAY PO ; 1/2 TSP. 1 X DAY PO
     Route: 048
     Dates: start: 20070401, end: 20100501
  3. CHILDREN'S ZYRTEC ALLERGY [Concomitant]

REACTIONS (3)
  - ABDOMINAL PAIN UPPER [None]
  - NAUSEA [None]
  - PRODUCT QUALITY ISSUE [None]
